FAERS Safety Report 18487185 (Version 3)
Quarter: 2021Q1

REPORT INFORMATION
  Report Type: Spontaneous
  Country: JP (occurrence: JP)
  Receive Date: 20201110
  Receipt Date: 20210104
  Transmission Date: 20210419
  Serious: Yes (Hospitalization, Other)
  Sender: FDA-Public Use
  Company Number: JP-ELI_LILLY_AND_COMPANY-JP202011000072

PATIENT
  Age: 72 Year
  Sex: Female
  Weight: 44 kg

DRUGS (3)
  1. VERZENIO [Suspect]
     Active Substance: ABEMACICLIB
     Dosage: 50 MG, BID
     Route: 048
     Dates: start: 20200413, end: 20201012
  2. LETROZOLE. [Concomitant]
     Active Substance: LETROZOLE
     Indication: BREAST CANCER RECURRENT
     Dosage: 2.5 MG, DAILY
     Route: 048
     Dates: start: 20191216, end: 20201012
  3. VERZENIO [Suspect]
     Active Substance: ABEMACICLIB
     Indication: BREAST CANCER RECURRENT
     Dosage: 100 MG, BID
     Route: 048
     Dates: start: 20200316, end: 20200330

REACTIONS (11)
  - Abdominal pain [Unknown]
  - Diarrhoea [Unknown]
  - Physical deconditioning [Unknown]
  - Cholangitis [Recovered/Resolved]
  - Malignant neoplasm progression [Unknown]
  - Vomiting [Unknown]
  - Rash [Unknown]
  - Hepatic function abnormal [Not Recovered/Not Resolved]
  - Sepsis [Recovered/Resolved]
  - Palpitations [Unknown]
  - Nausea [Unknown]

NARRATIVE: CASE EVENT DATE: 202003
